FAERS Safety Report 20770152 (Version 2)
Quarter: 2022Q2

REPORT INFORMATION
  Report Type: Report from Study
  Country: FR (occurrence: FR)
  Receive Date: 20220429
  Receipt Date: 20220512
  Transmission Date: 20220720
  Serious: Yes (Death)
  Sender: FDA-Public Use
  Company Number: FR-NOVARTISPH-NVSC2021FR258947

PATIENT
  Age: 75 Year
  Sex: Female
  Weight: 65.6 kg

DRUGS (5)
  1. ASCIMINIB [Suspect]
     Active Substance: ASCIMINIB
     Indication: Acute lymphocytic leukaemia
     Dosage: 3 TABLETS OF 40 MG (IN THE MORNING AND IN THE EVENING)
     Route: 048
     Dates: start: 20211019, end: 20211026
  2. ASCIMINIB [Suspect]
     Active Substance: ASCIMINIB
     Dosage: 5 DOSAGE FORM (5 TABLETS OF 40MG, IN THE MORNING AND IN THE EVENING)
     Route: 048
     Dates: start: 20211027
  3. VALACYCLOVIR HYDROCHLORIDE [Concomitant]
     Active Substance: VALACYCLOVIR HYDROCHLORIDE
     Indication: Product used for unknown indication
     Dosage: 500 MG (IN THE MORNING AND IN THE EVENING)
     Route: 048
     Dates: start: 20210923
  4. BENSERAZIDE HYDROCHLORIDE\LEVODOPA [Concomitant]
     Active Substance: BENSERAZIDE HYDROCHLORIDE\LEVODOPA
     Indication: Parkinson^s disease
     Dosage: 250 MG (IN THE MORNING, AT NOON AND IN THE EVENING)
     Route: 048
     Dates: start: 20210923
  5. NICARDIPINE HYDROCHLORIDE [Concomitant]
     Active Substance: NICARDIPINE HYDROCHLORIDE
     Indication: Hypertension
     Dosage: 50 MG (IN THE EVENING)
     Route: 048
     Dates: start: 20210923

REACTIONS (5)
  - Acute lymphocytic leukaemia recurrent [Fatal]
  - Weight increased [Not Recovered/Not Resolved]
  - Pain in extremity [Not Recovered/Not Resolved]
  - Oedema [Not Recovered/Not Resolved]
  - Arthralgia [Not Recovered/Not Resolved]

NARRATIVE: CASE EVENT DATE: 20211108
